FAERS Safety Report 18124413 (Version 2)
Quarter: 2020Q3

REPORT INFORMATION
  Report Type: Spontaneous
  Country: US (occurrence: US)
  Receive Date: 20200807
  Receipt Date: 20200818
  Transmission Date: 20201103
  Serious: No
  Sender: FDA-Public Use
  Company Number: US-PFIZER INC-2020294554

PATIENT
  Age: 30 Year
  Sex: Male
  Weight: 86.18 kg

DRUGS (2)
  1. VIAGRA [Suspect]
     Active Substance: SILDENAFIL CITRATE
     Indication: ERECTILE DYSFUNCTION
     Dosage: 25 MG, 3X/DAY (THREE TIMES OVER THE COURSE OF THE DAY)
  2. VIAGRA [Suspect]
     Active Substance: SILDENAFIL CITRATE
     Dosage: 100 MG
     Dates: start: 20200804

REACTIONS (3)
  - Penile swelling [Unknown]
  - Penile pain [Unknown]
  - Intentional product misuse [Unknown]
